FAERS Safety Report 8967995 (Version 1)
Quarter: 2012Q4

REPORT INFORMATION
  Report Type: 
  Country: US (occurrence: US)
  Receive Date: 20121218
  Receipt Date: 20121218
  Transmission Date: 20130627
  Serious: No
  Sender: FDA-Public Use
  Company Number: US-PFIZER INC-2012307724

PATIENT
  Sex: Male

DRUGS (1)
  1. NEURONTIN [Suspect]
     Dosage: half tablets of 800 mg

REACTIONS (5)
  - Blister [Not Recovered/Not Resolved]
  - Pain [Unknown]
  - Rash [Unknown]
  - Drug dispensing error [Unknown]
  - Wrong technique in drug usage process [Unknown]
